FAERS Safety Report 11462487 (Version 1)
Quarter: 2015Q3

REPORT INFORMATION
  Report Type: Spontaneous
  Country: US (occurrence: US)
  Receive Date: 20150831
  Receipt Date: 20150831
  Transmission Date: 20151125
  Serious: No
  Sender: FDA-Public Use
  Company Number: US-ELI_LILLY_AND_COMPANY-US201011006174

PATIENT
  Age: 68 Year
  Sex: Female

DRUGS (6)
  1. SEROQUEL [Concomitant]
     Active Substance: QUETIAPINE FUMARATE
  2. CYMBALTA [Suspect]
     Active Substance: DULOXETINE HYDROCHLORIDE
     Indication: GENERALISED ANXIETY DISORDER
     Dosage: 30 MG, DAILY (1/D)
     Dates: start: 201011, end: 20101121
  3. CYMBALTA [Suspect]
     Active Substance: DULOXETINE HYDROCHLORIDE
     Dosage: 60 MG, UNKNOWN
     Dates: start: 20101122
  4. VALIUM [Concomitant]
     Active Substance: DIAZEPAM
  5. EFFEXOR /USA/ [Concomitant]
     Dosage: UNK, UNKNOWN
     Route: 065
     Dates: start: 201011
  6. EFFEXOR /USA/ [Concomitant]
     Dosage: UNK, UNKNOWN
     Route: 065
     Dates: end: 201011

REACTIONS (5)
  - Mental impairment [Unknown]
  - Heart rate increased [Unknown]
  - Head discomfort [Unknown]
  - Anxiety [Unknown]
  - Dyspnoea [Unknown]

NARRATIVE: CASE EVENT DATE: 20101122
